FAERS Safety Report 13538727 (Version 1)
Quarter: 2017Q2

REPORT INFORMATION
  Report Type: Spontaneous
  Country: US (occurrence: US)
  Receive Date: 20170511
  Receipt Date: 20170511
  Transmission Date: 20170830
  Serious: No
  Sender: FDA-Public Use
  Company Number: None

PATIENT
  Age: 19 Year
  Sex: Female
  Weight: 90 kg

DRUGS (1)
  1. SKYLA [Suspect]
     Active Substance: LEVONORGESTREL
     Indication: CONTRACEPTION
     Dosage: ?          OTHER FREQUENCY:ONCE Q 3 YEARS;?
     Route: 015
     Dates: start: 20150624, end: 20170511

REACTIONS (3)
  - Pregnancy with contraceptive device [None]
  - Abortion induced [None]
  - Exposure during pregnancy [None]

NARRATIVE: CASE EVENT DATE: 20170301
